FAERS Safety Report 5336494-7 (Version None)
Quarter: 2007Q2

REPORT INFORMATION
  Report Type: 
  Country: None (occurrence: None)
  Receive Date: 20070529
  Receipt Date: 20070523
  Transmission Date: 20071010
  Serious: Yes (Disabling)
  Sender: FDA-Public Use
  Company Number: CH-ELI_LILLY_AND_COMPANY-CH200705005993

PATIENT
  Age: 61 Year
  Sex: Female
  Weight: 94.2 kg

DRUGS (17)
  1. ZYPREXA [Suspect]
     Indication: DRUG USE FOR UNKNOWN INDICATION
     Dosage: 10 MG, DAILY (1/D)
     Route: 048
     Dates: start: 20051101, end: 20051102
  2. ZYPREXA [Suspect]
     Dosage: 5 MG, DAILY (1/D)
     Route: 048
     Dates: start: 20051103, end: 20051114
  3. SEROPRAM [Concomitant]
     Indication: DRUG USE FOR UNKNOWN INDICATION
     Dosage: 60 MG, DAILY (1/D)
     Route: 048
  4. RISPERDAL [Concomitant]
     Indication: DRUG USE FOR UNKNOWN INDICATION
     Dosage: 2 MG, DAILY (1/D)
     Route: 048
     Dates: start: 20051115, end: 20051117
  5. RISPERDAL [Concomitant]
     Dosage: 4 MG, DAILY (1/D)
     Route: 048
     Dates: start: 20051118, end: 20051206
  6. RISPERDAL [Concomitant]
     Dosage: 3 MG, DAILY (1/D)
     Route: 048
     Dates: start: 20051207, end: 20051228
  7. RISPERDAL [Concomitant]
     Dosage: 2 MG, DAILY (1/D)
     Route: 048
     Dates: start: 20051229, end: 20060101
  8. TRILEPTAL [Concomitant]
     Indication: DRUG USE FOR UNKNOWN INDICATION
     Dosage: 300 - 600MG, DAILY (1/D)
     Route: 048
     Dates: start: 20051108, end: 20051114
  9. TRILEPTAL [Concomitant]
     Dosage: 900 MG, DAILY (1/D)
     Route: 048
     Dates: start: 20051115, end: 20051124
  10. TRILEPTAL [Concomitant]
     Dosage: 600 MG, DAILY (1/D)
     Route: 048
     Dates: start: 20051125, end: 20051128
  11. TRILEPTAL [Concomitant]
     Dosage: 300 MG, DAILY (1/D)
     Route: 048
     Dates: start: 20051129, end: 20051229
  12. TRASICOR [Concomitant]
     Dosage: 240 MG, DAILY (1/D)
     Route: 048
     Dates: start: 20051110, end: 20051231
  13. TRASICOR [Concomitant]
     Dosage: 320 MG, DAILY (1/D)
     Route: 048
     Dates: start: 20051231
  14. ENTUMIN [Concomitant]
     Dosage: 40 MG, DAILY (1/D)
     Route: 048
     Dates: start: 20051121, end: 20051213
  15. ENTUMIN [Concomitant]
     Dosage: 30 MG, DAILY (1/D)
     Route: 048
     Dates: start: 20051214, end: 20051214
  16. ENTUMIN [Concomitant]
     Dosage: 20 MG, DAILY (1/D)
     Route: 048
     Dates: start: 20051215, end: 20051218
  17. ENTUMIN [Concomitant]
     Dosage: 10 MG, DAILY (1/D)
     Route: 048
     Dates: start: 20051219, end: 20051222

REACTIONS (3)
  - DIABETES MELLITUS INSULIN-DEPENDENT [None]
  - METABOLIC SYNDROME [None]
  - WEIGHT INCREASED [None]
